FAERS Safety Report 24894161 (Version 1)
Quarter: 2025Q1

REPORT INFORMATION
  Report Type: Spontaneous
  Country: DE (occurrence: DE)
  Receive Date: 20250128
  Receipt Date: 20250128
  Transmission Date: 20250408
  Serious: No
  Sender: ASTELLAS
  Company Number: DE-ASTELLAS-2025-AER-005141

PATIENT
  Age: 69 Year
  Sex: Female

DRUGS (2)
  1. VEOZAH [Suspect]
     Active Substance: FEZOLINETANT
     Indication: Hot flush
     Route: 065
     Dates: start: 202410
  2. Magnesium 375 [Concomitant]
     Indication: Product used for unknown indication
     Route: 065

REACTIONS (1)
  - Fatigue [Unknown]
